FAERS Safety Report 20784525 (Version 2)
Quarter: 2022Q2

REPORT INFORMATION
  Report Type: Spontaneous
  Country: JP (occurrence: JP)
  Receive Date: 20220504
  Receipt Date: 20220525
  Transmission Date: 20220721
  Serious: Yes (Other)
  Sender: FDA-Public Use
  Company Number: JP-PFIZER INC-202200632079

PATIENT
  Age: 72 Year
  Sex: Female
  Weight: 33.5 kg

DRUGS (4)
  1. PAXLOVID [Suspect]
     Active Substance: NIRMATRELVIR\RITONAVIR
     Indication: COVID-19 treatment
     Dosage: 3 DF, 2X/DAY
     Route: 048
     Dates: start: 20220423, end: 20220427
  2. CELECOXIB [Concomitant]
     Active Substance: CELECOXIB
     Indication: Osteoarthritis
     Dosage: 1 DF, 2X/DAY
     Route: 048
     Dates: start: 20220419
  3. REBAMIPIDE [Concomitant]
     Active Substance: REBAMIPIDE
     Indication: Osteoarthritis
     Dosage: 1 DF, 3X/DAY
     Route: 048
     Dates: start: 20220419
  4. CALONAL [Concomitant]
     Active Substance: ACETAMINOPHEN
     Indication: Osteoarthritis
     Dosage: 2 DF, 3X/DAY
     Route: 048
     Dates: start: 20220417

REACTIONS (1)
  - Hypertension [Recovering/Resolving]

NARRATIVE: CASE EVENT DATE: 20220424
